FAERS Safety Report 8756807 (Version 2)
Quarter: 2012Q4

REPORT INFORMATION
  Report Type: 
  Country: US (occurrence: US)
  Receive Date: 20120828
  Receipt Date: 20121026
  Transmission Date: 20130627
  Serious: Yes (Hospitalization)
  Sender: FDA-Public Use
  Company Number: US-SANOFI-AVENTIS-2012SA059376

PATIENT
  Age: 13 Year
  Sex: Male
  Weight: 41.36 kg

DRUGS (5)
  1. ELITEK [Suspect]
     Indication: TUMOR LYSIS SYNDROME
     Route: 042
     Dates: start: 20120814, end: 20120814
  2. ELITEK [Suspect]
     Indication: HYPERURICEMIA
     Route: 042
     Dates: start: 20120814, end: 20120814
  3. THYROXINE SODIUM [Concomitant]
     Indication: HYPOTHYROIDISM
     Dosage: 50 mcg on Monday, Wednesday and Friday
75 mcg on Tuesday, Thursday, Saturday and Sunday
  4. RENAGEL [Concomitant]
     Indication: BLOOD PHOSPHORUS ABNORMAL
     Dates: start: 20120813
  5. CEFEPIME [Concomitant]
     Indication: FEVER
     Dosage: Dosage: 50 mg per kg per day
     Dates: start: 20120813

REACTIONS (5)
  - Liver disorder [Not Recovered/Not Resolved]
  - Hyperbilirubinaemia [Not Recovered/Not Resolved]
  - Methaemoglobinaemia [Recovered/Resolved]
  - Hypoxia [Recovered/Resolved]
  - Haemolysis [Not Recovered/Not Resolved]
